FAERS Safety Report 6118683-7 (Version None)
Quarter: 2009Q1

REPORT INFORMATION
  Report Type: 
  Country: None (occurrence: None)
  Receive Date: 20090314
  Receipt Date: 20090225
  Transmission Date: 20090719
  Serious: No
  Sender: FDA-Public Use
  Company Number: US-ABBOTT-09P-163-0559434-00

PATIENT
  Sex: Female

DRUGS (1)
  1. HUMIRA [Suspect]
     Indication: PSORIATIC ARTHROPATHY
     Dates: start: 20071001

REACTIONS (10)
  - EAR INFECTION [None]
  - FACIAL PAIN [None]
  - INFECTION [None]
  - MALAISE [None]
  - NASOPHARYNGITIS [None]
  - OROPHARYNGEAL PAIN [None]
  - PAIN IN JAW [None]
  - SINUSITIS [None]
  - TEARFULNESS [None]
  - TOOTHACHE [None]
